FAERS Safety Report 11471098 (Version 2)
Quarter: 2015Q3

REPORT INFORMATION
  Report Type: Spontaneous
  Country: US (occurrence: US)
  Receive Date: 20150903
  Receipt Date: 20150903
  Transmission Date: 20151125
  Serious: No
  Sender: FDA-Public Use
  Company Number: US-ELI_LILLY_AND_COMPANY-US201201004480

PATIENT
  Age: 48 Year
  Sex: Female

DRUGS (2)
  1. CYMBALTA [Suspect]
     Active Substance: DULOXETINE HYDROCHLORIDE
     Indication: ANXIETY
     Dosage: 30 MG, UNKNOWN
     Dates: start: 20120111, end: 20120112
  2. XANAX                                   /USA/ [Concomitant]

REACTIONS (12)
  - Dysarthria [Unknown]
  - Somnolence [Unknown]
  - Feeling drunk [Not Recovered/Not Resolved]
  - Irritability [Unknown]
  - Diarrhoea [Unknown]
  - Intentional product misuse [Unknown]
  - Nausea [Unknown]
  - Decreased appetite [Unknown]
  - Dry mouth [Unknown]
  - Asthenia [Unknown]
  - Tremor [Not Recovered/Not Resolved]
  - Headache [Unknown]

NARRATIVE: CASE EVENT DATE: 20120111
